FAERS Safety Report 25397200 (Version 1)
Quarter: 2025Q2

REPORT INFORMATION
  Report Type: Spontaneous
  Country: US (occurrence: None)
  Receive Date: 20250604
  Receipt Date: 20250604
  Transmission Date: 20250717
  Serious: Yes (Other)
  Sender: FDA-CTU
  Company Number: None

PATIENT
  Age: 59 Year
  Sex: Male
  Weight: 52 kg

DRUGS (2)
  1. TARLATAMAB [Suspect]
     Active Substance: TARLATAMAB
     Indication: Small cell lung cancer
     Route: 042
     Dates: start: 20241219, end: 20250321
  2. Dexamethasone 8mg (Pre-med) [Concomitant]
     Dates: start: 20241219, end: 20250321

REACTIONS (2)
  - Weight decreased [None]
  - Decreased appetite [None]
